FAERS Safety Report 6166274-4 (Version None)
Quarter: 2009Q2

REPORT INFORMATION
  Report Type: 
  Country: None (occurrence: None)
  Receive Date: 20090424
  Receipt Date: 20090416
  Transmission Date: 20091009
  Serious: Yes (Other)
  Sender: FDA-Public Use
  Company Number: JP-BRISTOL-MYERS SQUIBB COMPANY-14599179

PATIENT
  Age: 57 Year
  Sex: Male
  Weight: 54 kg

DRUGS (34)
  1. ERBITUX [Suspect]
     Indication: COLON CANCER
     Dosage: REGIMEN 2:ON 03DEC08-CONTD,250MG/M2,1 IN 1WK,IV.
     Route: 042
     Dates: start: 20081126, end: 20081126
  2. IRINOTECAN HCL [Suspect]
     Indication: COLON CANCER
     Dosage: REGIMEN 2: FROM 17DEC08-CONTD,80MG/M2,IV.
     Route: 042
     Dates: start: 20081126, end: 20081203
  3. DIPHENHYDRAMINE HCL [Concomitant]
     Indication: PREMEDICATION
     Dosage: FORM-TAB.
     Route: 048
     Dates: start: 20081126
  4. DEXAMETHASONE SODIUM PHOSPHATE [Concomitant]
     Indication: PREMEDICATION
     Route: 042
     Dates: start: 20081126
  5. AZASETRON HCL [Concomitant]
     Indication: ANTIEMETIC SUPPORTIVE CARE
     Route: 042
     Dates: start: 20081126
  6. GRANISETRON HCL [Concomitant]
     Indication: ANTIEMETIC SUPPORTIVE CARE
     Route: 042
     Dates: start: 20081210
  7. RAMOSETRON HCL [Concomitant]
     Dosage: FORMULATION = TABLET
     Route: 048
     Dates: start: 20081127
  8. WARFARIN POTASSIUM [Concomitant]
     Indication: VENA CAVA THROMBOSIS
     Dosage: FORM-TAB.
     Route: 048
     Dates: start: 20071023, end: 20090204
  9. FUROSEMIDE [Concomitant]
     Indication: OEDEMA
     Dosage: FORM-TAB.
     Route: 048
     Dates: start: 20081019, end: 20081224
  10. SPIRONOLACTONE [Concomitant]
     Indication: OEDEMA
     Dosage: FORM-TABLET.
     Route: 048
     Dates: start: 20081118
  11. MELOXICAM [Concomitant]
     Indication: BACK PAIN
     Dosage: FORM-TABLET.
     Route: 048
     Dates: start: 20071017
  12. IMIPRAMINE HCL [Concomitant]
     Indication: DEPRESSION
     Dosage: FORM-TABLET.
     Route: 048
     Dates: start: 20080930
  13. LORAZEPAM [Concomitant]
     Indication: PSYCHOSOMATIC DISEASE
     Dosage: FORM-TABLET.
     Route: 048
     Dates: start: 20080919
  14. ALLOPURINOL [Concomitant]
     Indication: HYPERTENSION
     Dosage: FORM-TABLET.
     Route: 048
     Dates: start: 20071102
  15. ALLOPURINOL [Concomitant]
     Indication: HYPERURICAEMIA
     Dosage: FORM-TABLET.
     Route: 048
     Dates: start: 20071102
  16. URSODIOL [Concomitant]
     Indication: CHOLELITHIASIS
     Dosage: FORM-TABLET.
     Route: 048
     Dates: start: 20071012
  17. URSODIOL [Concomitant]
     Indication: HYPERTENSION
     Dosage: FORM-TABLET.
     Route: 048
     Dates: start: 20071012
  18. MAGNESIUM OXIDE [Concomitant]
     Indication: HYPERTENSION
     Dosage: FORM-POWDER.
     Route: 048
  19. MAGNESIUM OXIDE [Concomitant]
     Indication: CONSTIPATION
     Dosage: FORM-POWDER.
     Route: 048
  20. LACTOMIN [Concomitant]
     Indication: HYPERTENSION
     Route: 048
     Dates: start: 20071012
  21. LACTOMIN [Concomitant]
     Indication: GASTROENTERITIS
     Route: 048
     Dates: start: 20071012
  22. FAMOTIDINE [Concomitant]
     Indication: HYPERTENSION
     Route: 048
     Dates: start: 20070901
  23. FAMOTIDINE [Concomitant]
     Indication: GASTRIC ULCER
     Route: 048
     Dates: start: 20070901
  24. SUCRALFATE [Concomitant]
     Indication: HYPERTENSION
     Dosage: FORM-POWDER
     Route: 048
     Dates: start: 20080422
  25. SUCRALFATE [Concomitant]
     Indication: GASTRIC ULCER
     Dosage: FORM-POWDER
     Route: 048
     Dates: start: 20080422
  26. REBAMIPIDE [Concomitant]
     Indication: GASTRIC ULCER
     Dosage: FORM-TABLET.
     Route: 048
     Dates: start: 20071013
  27. REBAMIPIDE [Concomitant]
     Indication: HYPERTENSION
     Dosage: FORM-TABLET.
     Route: 048
     Dates: start: 20071013
  28. AZULENE SULFONATE SODIUM [Concomitant]
     Indication: HYPERTENSION
     Dosage: FORM-POWDER
     Route: 048
     Dates: start: 20070829
  29. AZULENE SULFONATE SODIUM [Concomitant]
     Indication: GASTRIC ULCER
     Dosage: FORM-POWDER
     Route: 048
     Dates: start: 20070829
  30. PYRIDOXAL PHOSPHATE [Concomitant]
     Indication: HYPERTENSION
     Dosage: FORMULATION = TABLET
     Route: 048
     Dates: start: 20080527
  31. PYRIDOXAL PHOSPHATE [Concomitant]
     Indication: STOMATITIS
     Dosage: FORMULATION = TABLET
     Route: 048
     Dates: start: 20080527
  32. AMPHOTERICIN B [Concomitant]
     Indication: GASTROINTESTINAL CANDIDIASIS
     Route: 048
     Dates: start: 20081121
  33. AMPHOTERICIN B [Concomitant]
     Indication: HYPERTENSION
     Route: 048
     Dates: start: 20081121
  34. DEXCHLORPHENIRAMINE MALEATE [Concomitant]
     Indication: PREMEDICATION
     Route: 042
     Dates: start: 20081126

REACTIONS (5)
  - ACNE [None]
  - CHEILITIS [None]
  - PARONYCHIA [None]
  - PRURITUS [None]
  - SEBORRHOEIC DERMATITIS [None]
